FAERS Safety Report 9206030 (Version 2)
Quarter: 2013Q2

REPORT INFORMATION
  Report Type: Spontaneous
  Country: US (occurrence: None)
  Receive Date: 20120731
  Receipt Date: 20121130
  Transmission Date: 20140414
  Serious: Yes (Other)
  Sender: FDA-Public Use
  Company Number: US201204009806

PATIENT
  Age: 54 Year
  Sex: Male

DRUGS (2)
  1. BYDUREON [Suspect]
     Route: 058
  2. CRESTOR (ROSUVASTATIN CALCIUM) [Concomitant]

REACTIONS (4)
  - Pancreatitis [None]
  - Lipase increased [None]
  - Abdominal pain upper [None]
  - Gastrooesophageal reflux disease [None]
